FAERS Safety Report 22163346 (Version 4)
Quarter: 2024Q2

REPORT INFORMATION
  Report Type: Report from Study
  Country: US (occurrence: US)
  Receive Date: 20230401
  Receipt Date: 20240605
  Transmission Date: 20240716
  Serious: Yes (Other)
  Sender: FDA-Public Use
  Company Number: US-002147023-NVSC2023US072242

PATIENT
  Sex: Female

DRUGS (1)
  1. KESIMPTA [Suspect]
     Active Substance: OFATUMUMAB
     Indication: Product used for unknown indication
     Dosage: UNK
     Route: 065

REACTIONS (10)
  - Multiple sclerosis relapse [Unknown]
  - Headache [Unknown]
  - Urinary tract infection [Unknown]
  - Respiratory disorder [Unknown]
  - Rash [Unknown]
  - Skin infection [Unknown]
  - Hyperhidrosis [Unknown]
  - Respiratory tract infection [Unknown]
  - Stress [Unknown]
  - Anxiety [Unknown]
